FAERS Safety Report 7716593-2 (Version None)
Quarter: 2011Q3

REPORT INFORMATION
  Report Type: 
  Country: None (occurrence: None)
  Receive Date: 20110829
  Receipt Date: 20101029
  Transmission Date: 20111222
  Serious: No
  Sender: FDA-Public Use
  Company Number: US-GLAXOSMITHKLINE-A0889734A

PATIENT
  Age: 30 Year
  Sex: Female

DRUGS (3)
  1. BECONASE [Suspect]
     Indication: RHINITIS ALLERGIC
     Dosage: 1SPR PER DAY
     Route: 045
     Dates: start: 20060101
  2. FLONASE [Suspect]
     Indication: RHINITIS ALLERGIC
     Route: 045
     Dates: start: 20050101
  3. NO CONCURRENT MEDICATION [Concomitant]

REACTIONS (1)
  - MIGRAINE [None]
